FAERS Safety Report 7520745-4 (Version None)
Quarter: 2011Q2

REPORT INFORMATION
  Report Type: 
  Country: None (occurrence: None)
  Receive Date: 20110603
  Receipt Date: 20101117
  Transmission Date: 20111010
  Serious: Yes (Hospitalization)
  Sender: FDA-Public Use
  Company Number: BR-BAYER-200924817LA

PATIENT
  Age: 45 Year
  Sex: Female

DRUGS (3)
  1. BETAFERON [Suspect]
     Indication: MULTIPLE SCLEROSIS
     Route: 058
  2. BETAFERON [Suspect]
     Dosage: 8 MIU, QOD
     Route: 058
  3. BETAFERON [Suspect]
     Indication: SINUSITIS
     Route: 058
     Dates: start: 20091118

REACTIONS (24)
  - PRURITUS [None]
  - INJECTION SITE SWELLING [None]
  - MULTIPLE SCLEROSIS RELAPSE [None]
  - HOSPITALISATION [None]
  - ACUTE SINUSITIS [None]
  - INJECTION SITE ERYTHEMA [None]
  - INJECTION SITE PRURITUS [None]
  - MUSCULAR WEAKNESS [None]
  - HEADACHE [None]
  - NECK PAIN [None]
  - INJECTION SITE MASS [None]
  - DYSURIA [None]
  - VISUAL IMPAIRMENT [None]
  - MASS [None]
  - INJECTION SITE PAIN [None]
  - FEELING HOT [None]
  - PYREXIA [None]
  - RETCHING [None]
  - URINARY TRACT INFECTION [None]
  - PARAESTHESIA [None]
  - CHILLS [None]
  - HYPERHIDROSIS [None]
  - INJECTION SITE DISCOLOURATION [None]
  - URINARY RETENTION [None]
